FAERS Safety Report 8981968 (Version 1)
Quarter: 2012Q4

REPORT INFORMATION
  Report Type: 
  Country: US (occurrence: US)
  Receive Date: 20121212
  Receipt Date: 20121212
  Transmission Date: 20130627
  Serious: Yes (Death, Hospitalization)
  Sender: FDA-Public Use
  Company Number: US-ASTELLAS-1108382

PATIENT
  Sex: Male

DRUGS (6)
  1. TARCEVA [Suspect]
     Indication: MALIGNANT RESPIRATORY TRACT NEOPLASM
     Route: 065
  2. METFORMIN [Concomitant]
  3. DEXAMETHASONE [Concomitant]
  4. LISINOPRIL [Concomitant]
  5. TERAZOSIN [Concomitant]
  6. OMEPRAZOLE [Concomitant]

REACTIONS (5)
  - Sepsis [Fatal]
  - Acute myocardial infarction [Fatal]
  - Respiratory failure [Fatal]
  - Pneumonia [Unknown]
  - Rash [Unknown]
